FAERS Safety Report 7144761-X (Version None)
Quarter: 2010Q4

REPORT INFORMATION
  Report Type: 
  Country: None (occurrence: None)
  Receive Date: 20101112
  Receipt Date: 20101002
  Transmission Date: 20110411
  Serious: No
  Sender: FDA-Public Use
  Company Number: 1000016607

PATIENT
  Age: 53 Year
  Sex: Female

DRUGS (3)
  1. SAVELLA [Suspect]
     Indication: PAIN
     Dosage: (12.5 (12.5 MG, 1 IN 1 D) ORAL)
     Route: 048
     Dates: start: 20101001, end: 20101001
  2. SAVELLA [Suspect]
     Indication: PAIN
     Dosage: 25 MG (12.5 MG, 2 IN 1 D) ORAL
     Route: 048
     Dates: start: 20101002, end: 20101003
  3. TRAMADOL HCL [Concomitant]

REACTIONS (5)
  - DECREASED APPETITE [None]
  - DIARRHOEA [None]
  - FLATULENCE [None]
  - LETHARGY [None]
  - VOMITING [None]
